FAERS Safety Report 15765674 (Version 3)
Quarter: 2019Q1

REPORT INFORMATION
  Report Type: Spontaneous
  Country: US (occurrence: US)
  Receive Date: 20181227
  Receipt Date: 20190117
  Transmission Date: 20190417
  Serious: Yes (Other)
  Sender: FDA-Public Use
  Company Number: US-SA-2018SA388426

PATIENT
  Age: 44 Year
  Sex: Female
  Weight: 72.56 kg

DRUGS (20)
  1. ACETAMINOPHEN. [Concomitant]
     Active Substance: ACETAMINOPHEN
     Indication: PREMEDICATION
     Dosage: 650 MG, UNK
     Route: 048
     Dates: start: 20181015
  2. SOLU-MEDROL [Concomitant]
     Active Substance: METHYLPREDNISOLONE SODIUM SUCCINATE
     Dosage: 1 MG/KG, A DIRECTED
     Route: 042
     Dates: start: 20181015
  3. ATIVAN [Concomitant]
     Active Substance: LORAZEPAM
     Dosage: 0.5 MG, TID
     Route: 048
     Dates: start: 20180122
  4. TRAZODONE [Concomitant]
     Active Substance: TRAZODONE HYDROCHLORIDE
     Dosage: 100 MG, HS
     Route: 048
     Dates: start: 20180108
  5. SPIRONOLACTONE. [Concomitant]
     Active Substance: SPIRONOLACTONE
     Dosage: 50 MG, QD
     Route: 048
     Dates: start: 20170907
  6. NORMAL SALINE [Concomitant]
     Active Substance: SODIUM CHLORIDE
     Dosage: 0.9 %, UNK
     Route: 042
     Dates: start: 20181015
  7. EPINEPHRINE. [Concomitant]
     Active Substance: EPINEPHRINE
     Indication: ANAPHYLACTIC REACTION
     Dosage: 0.3 MG, PRN
     Route: 030
     Dates: start: 20181015
  8. DEPLIN [Concomitant]
     Active Substance: LEVOMEFOLATE CALCIUM
     Dosage: 1 CAPSULE, AS DIRECTED
     Route: 048
     Dates: start: 20180723
  9. BUMETANIDE. [Concomitant]
     Active Substance: BUMETANIDE
     Dosage: 1 TABLET BID
     Route: 048
     Dates: start: 20170908
  10. GABAPENTIN. [Concomitant]
     Active Substance: GABAPENTIN
     Dosage: 1 CAPSULE QID
     Route: 048
     Dates: start: 20170908
  11. MUCINEX [Concomitant]
     Active Substance: GUAIFENESIN
     Dosage: 1 TABLET BID
     Route: 048
     Dates: start: 20161108
  12. OMEPRAZOLE. [Concomitant]
     Active Substance: OMEPRAZOLE
     Dosage: 40 MG, BID
     Route: 048
     Dates: start: 20140808
  13. FABRAZYME [Suspect]
     Active Substance: AGALSIDASE BETA
     Dosage: 35 MG, QOW
     Route: 041
     Dates: start: 20121102
  14. SODIUM CHLORIDE. [Concomitant]
     Active Substance: SODIUM CHLORIDE
     Indication: FLUSHING
     Dosage: 0.9 %, UNK
     Route: 042
     Dates: start: 20181015
  15. FABRAZYME [Suspect]
     Active Substance: AGALSIDASE BETA
     Indication: FABRY^S DISEASE
     Dosage: 70 MG, QOW
     Route: 041
     Dates: start: 20120927
  16. DIPHENHYDRAMINE. [Concomitant]
     Active Substance: DIPHENHYDRAMINE
     Indication: ANAPHYLACTIC REACTION
     Dosage: 50 MG, UNK
     Route: 048
     Dates: start: 20181015
  17. STERILE WATER [Concomitant]
     Active Substance: WATER
     Dosage: 1 EACH
     Route: 042
     Dates: start: 20181015
  18. ZOFRAN [Concomitant]
     Active Substance: ONDANSETRON HYDROCHLORIDE
     Dosage: 4 MG, PRN
     Route: 048
     Dates: start: 20180724
  19. POTASSIUM [Concomitant]
     Active Substance: POTASSIUM
     Dosage: 2 TABLETS, TID
     Route: 048
     Dates: start: 20180723
  20. CARVEDILOL. [Concomitant]
     Active Substance: CARVEDILOL
     Dosage: 3.125 MG, BID
     Route: 048
     Dates: start: 20160105

REACTIONS (1)
  - Pertussis [Not Recovered/Not Resolved]
